FAERS Safety Report 14663269 (Version 1)
Quarter: 2018Q1

REPORT INFORMATION
  Report Type: Spontaneous
  Country: US (occurrence: US)
  Receive Date: 20180316
  Receipt Date: 20180316
  Transmission Date: 20180509
  Serious: No
  Sender: FDA-Public Use
  Company Number: None

PATIENT
  Age: 11 Year
  Sex: Female
  Weight: 30 kg

DRUGS (1)
  1. ORA-SWEET SF [Suspect]
     Active Substance: SORBITOL
     Dates: start: 20180316, end: 20180316

REACTIONS (2)
  - Product label issue [None]
  - Product formulation issue [None]

NARRATIVE: CASE EVENT DATE: 20180316
